FAERS Safety Report 8054944-2 (Version None)
Quarter: 2012Q1

REPORT INFORMATION
  Report Type: 
  Country: None (occurrence: None)
  Receive Date: 20120119
  Receipt Date: 20120110
  Transmission Date: 20120608
  Serious: Yes (Other)
  Sender: FDA-Public Use
  Company Number: US-ELI_LILLY_AND_COMPANY-US201112003989

PATIENT
  Sex: Female
  Weight: 67.12 kg

DRUGS (1)
  1. STRATTERA [Suspect]
     Indication: ATTENTION DEFICIT/HYPERACTIVITY DISORDER
     Dosage: 80 MG, QD
     Route: 048
     Dates: start: 20110812, end: 20111212

REACTIONS (6)
  - AMNESIA [None]
  - FALL [None]
  - SYNCOPE [None]
  - MYALGIA [None]
  - HEADACHE [None]
  - SUPRAVENTRICULAR EXTRASYSTOLES [None]
